FAERS Safety Report 8988973 (Version 1)
Quarter: 2012Q4

REPORT INFORMATION
  Report Type: Spontaneous
  Country: US (occurrence: None)
  Receive Date: 20121220
  Receipt Date: 20121220
  Transmission Date: 20130627
  Serious: Yes (Hospitalization)
  Sender: FDA-Public Use
  Company Number: IPC201212-000640

PATIENT
  Sex: Female

DRUGS (4)
  1. ATENOLOL [Suspect]
     Indication: HYPERTENSION
     Dates: start: 2008, end: 2008
  2. ATENOLOL [Suspect]
     Indication: HYPERTENSION
     Dates: end: 2008
  3. HYDROCHLOROTHIAZIDE [Suspect]
     Dates: start: 2008, end: 2008
  4. HYDROCHLOROTHIAZIDE [Suspect]
     Dates: end: 2008

REACTIONS (5)
  - Blood pressure increased [None]
  - Metabolic disorder [None]
  - Weight increased [None]
  - Fatigue [None]
  - Alopecia [None]
